FAERS Safety Report 6107849-8 (Version None)
Quarter: 2009Q1

REPORT INFORMATION
  Report Type: 
  Country: None (occurrence: None)
  Receive Date: 20090305
  Receipt Date: 20090305
  Transmission Date: 20090719
  Serious: Yes (Disabling, Other)
  Sender: FDA-Public Use
  Company Number: None

PATIENT
  Age: 60 Year
  Sex: Female
  Weight: 52.6173 kg

DRUGS (1)
  1. RECLAST [Suspect]
     Indication: OSTEOPOROSIS
     Dosage: 5 ML ONCE PER YEAR IV DRIP
     Route: 041
     Dates: start: 20080415, end: 20080415

REACTIONS (4)
  - BACTERIAL INFECTION [None]
  - MIGRAINE [None]
  - OSTEONECROSIS [None]
  - TOOTH EXTRACTION [None]
